FAERS Safety Report 10078345 (Version 1)
Quarter: 2014Q1

REPORT INFORMATION
  Report Type: Spontaneous
  Country: US (occurrence: None)
  Receive Date: 20140325
  Receipt Date: 20140325
  Transmission Date: 20141002
  Serious: Yes (Other)
  Sender: FDA-Public Use
  Company Number: 2014-00034

PATIENT
  Age: 56 Year
  Sex: Female
  Weight: 80.74 kg

DRUGS (2)
  1. ZICAM COLD REMEDY NASAL GEL SWAB [Suspect]
     Indication: NASOPHARYNGITIS
     Dosage: 1 NASAL SWAB NOS
  2. INJECTABLE BOX TREAMENTS TO EYES [Concomitant]

REACTIONS (2)
  - Parosmia [None]
  - Dysgeusia [None]
